FAERS Safety Report 16521041 (Version 1)
Quarter: 2019Q3

REPORT INFORMATION
  Report Type: Spontaneous
  Country: ZA (occurrence: ZA)
  Receive Date: 20190703
  Receipt Date: 20190703
  Transmission Date: 20191004
  Serious: Yes (Hospitalization, Other)
  Sender: FDA-Public Use
  Company Number: ZA-LUPIN PHARMACEUTICALS INC.-2019-04000

PATIENT
  Sex: Male

DRUGS (6)
  1. DIAGLUCIDE [Suspect]
     Active Substance: GLICLAZIDE
     Indication: DIABETES MELLITUS
     Dosage: 30 MILLIGRAM
     Route: 048
  2. BILOCOR CO [Suspect]
     Active Substance: BISOPROLOL FUMARATE\HYDROCHLOROTHIAZIDE
     Indication: HYPERTENSION
     Dosage: UNK (6/6.25 MG, TABLET)
     Route: 048
  3. ASPEN WARFARIN [Suspect]
     Active Substance: WARFARIN
     Indication: ANTICOAGULANT THERAPY
     Dosage: 5 MILLIGRAM
     Route: 048
  4. SPIRACTIN [SPIRONOLACTONE] [Suspect]
     Active Substance: SPIRONOLACTONE
     Indication: HYPERTENSION
     Dosage: 25 MILLIGRAM
     Route: 048
  5. AMLOC TABLETS [Suspect]
     Active Substance: AMLODIPINE BESYLATE
     Indication: HYPERTENSION
     Dosage: 5 MILLIGRAM
     Route: 048
  6. GLUCOPHAGE [Suspect]
     Active Substance: METFORMIN HYDROCHLORIDE
     Indication: DIABETES MELLITUS
     Dosage: 1000 MILLIGRAM
     Route: 048

REACTIONS (1)
  - Cerebral haemorrhage [Unknown]
